FAERS Safety Report 8886423 (Version 1)
Quarter: 2012Q4

REPORT INFORMATION
  Report Type: 
  Country: US (occurrence: US)
  Receive Date: 20121105
  Receipt Date: 20121105
  Transmission Date: 20130627
  Serious: No
  Sender: FDA-Public Use
  Company Number: US-PFIZER INC-2012274881

PATIENT
  Age: 41 Year
  Sex: Female
  Weight: 83.9 kg

DRUGS (1)
  1. ADVIL [Suspect]
     Indication: FLU
     Dosage: 200 mg, 1x/day
     Route: 048
     Dates: start: 20121024, end: 20121024

REACTIONS (2)
  - Off label use [Unknown]
  - Palpitations [Unknown]
